FAERS Safety Report 19377742 (Version 2)
Quarter: 2021Q3

REPORT INFORMATION
  Report Type: Report from Study
  Country: CA (occurrence: CA)
  Receive Date: 20210604
  Receipt Date: 20210907
  Transmission Date: 20211014
  Serious: Yes (Hospitalization)
  Sender: FDA-Public Use
  Company Number: CA-OTSUKA-2021_018469

PATIENT
  Sex: Female

DRUGS (2)
  1. CEDAZURIDINE AND DECITABINE [Suspect]
     Active Substance: CEDAZURIDINE\DECITABINE
     Indication: MYELODYSPLASTIC SYNDROME
     Dosage: UNK, (35 MG DECITABINE AND 100 MG CEDAZURIDINE) FOR 5 DAYS
     Route: 048
     Dates: start: 20210308
  2. CEDAZURIDINE AND DECITABINE [Suspect]
     Active Substance: CEDAZURIDINE\DECITABINE
     Dosage: UNK, (35 MG DECITABINE AND 100 MG CEDAZURIDINE) 3 DAYS (DOWN TO 3 PILL)
     Route: 048

REACTIONS (2)
  - White blood cell count decreased [Unknown]
  - Pleural effusion [Unknown]
